FAERS Safety Report 13572962 (Version 2)
Quarter: 2017Q2

REPORT INFORMATION
  Report Type: Spontaneous
  Country: US (occurrence: US)
  Receive Date: 20170523
  Receipt Date: 20170628
  Transmission Date: 20170830
  Serious: Yes (Other)
  Sender: FDA-Public Use
  Company Number: US-UNITED THERAPEUTICS-UNT-2017-007436

PATIENT
  Age: 77 Year
  Sex: Female
  Weight: 61.68 kg

DRUGS (3)
  1. LETAIRIS [Concomitant]
     Active Substance: AMBRISENTAN
     Indication: PRODUCT USED FOR UNKNOWN INDICATION
  2. TYVASO [Suspect]
     Active Substance: TREPROSTINIL
     Dosage: UNK
  3. TYVASO [Suspect]
     Active Substance: TREPROSTINIL
     Indication: PULMONARY ARTERIAL HYPERTENSION
     Dosage: 18 - 72 ?G, QID
     Dates: start: 20160503

REACTIONS (4)
  - Off label use [Unknown]
  - Catheterisation cardiac [Unknown]
  - Renal impairment [Unknown]
  - Palpitations [Unknown]

NARRATIVE: CASE EVENT DATE: 201706
